FAERS Safety Report 23417673 (Version 1)
Quarter: 2024Q1

REPORT INFORMATION
  Report Type: Spontaneous
  Country: US (occurrence: US)
  Receive Date: 20240118
  Receipt Date: 20240118
  Transmission Date: 20240410
  Serious: No
  Sender: FDA-Public Use
  Company Number: US-SK LIFE SCIENCE, INC-SKPVG-2023-001230

PATIENT

DRUGS (6)
  1. XCOPRI [Suspect]
     Active Substance: CENOBAMATE
     Indication: Epilepsy
     Dosage: UNK
     Route: 048
  2. XCOPRI [Suspect]
     Active Substance: CENOBAMATE
     Dosage: 150 MILLIGRAM, QD
     Route: 048
     Dates: end: 20231004
  3. CLOBAZAM [Concomitant]
     Active Substance: CLOBAZAM
     Indication: Seizure
     Dosage: UNK
     Route: 065
     Dates: end: 20231004
  4. CLOBAZAM [Concomitant]
     Active Substance: CLOBAZAM
     Dosage: UNK
     Route: 065
  5. LACOSAMIDE [Concomitant]
     Active Substance: LACOSAMIDE
     Indication: Seizure
     Dosage: UNK
     Route: 065
     Dates: end: 20231004
  6. LACOSAMIDE [Concomitant]
     Active Substance: LACOSAMIDE
     Dosage: UNK
     Route: 065

REACTIONS (2)
  - Product dose omission issue [Not Recovered/Not Resolved]
  - Product use issue [Not Recovered/Not Resolved]

NARRATIVE: CASE EVENT DATE: 20231005
